FAERS Safety Report 21556062 (Version 1)
Quarter: 2022Q4

REPORT INFORMATION
  Report Type: Spontaneous
  Country: GB (occurrence: GB)
  Receive Date: 20221104
  Receipt Date: 20221104
  Transmission Date: 20230113
  Serious: Yes (Other)
  Sender: FDA-Public Use
  Company Number: GB-MHRA-MED-202211011243170490-MTCKV

PATIENT
  Age: 58 Year
  Sex: Male

DRUGS (2)
  1. BEVACIZUMAB [Suspect]
     Active Substance: BEVACIZUMAB
     Dosage: 500 MG
     Route: 042
  2. LORLATINIB [Suspect]
     Active Substance: LORLATINIB
     Dosage: 100 MG
     Route: 048

REACTIONS (4)
  - Haemorrhage [Unknown]
  - Epistaxis [Unknown]
  - Mobility decreased [Unknown]
  - Contusion [Unknown]
